FAERS Safety Report 4529895-8 (Version None)
Quarter: 2004Q4

REPORT INFORMATION
  Report Type: 
  Country: None (occurrence: None)
  Receive Date: 20041217
  Receipt Date: 20041207
  Transmission Date: 20050328
  Serious: Yes (Hospitalization)
  Sender: FDA-Public Use
  Company Number: FR-BRISTOL-MYERS SQUIBB COMPANY-12786497

PATIENT
  Age: 45 Year
  Sex: Female
  Weight: 63 kg

DRUGS (6)
  1. ZERIT [Suspect]
     Indication: HIV INFECTION
     Route: 048
     Dates: start: 20030220, end: 20030224
  2. INTRON A [Suspect]
     Indication: KAPOSI'S SARCOMA
     Dosage: INITIATED AT 8 MIU DAILY, INCREASED TO 16 MIU DAILY ON 17-FEB-2003
     Route: 058
     Dates: start: 20030214, end: 20030224
  3. NOROXIN [Suspect]
     Indication: URINARY TRACT INFECTION
     Route: 048
     Dates: start: 20030217, end: 20030224
  4. EPIVIR [Suspect]
     Indication: HIV INFECTION
     Route: 048
     Dates: start: 20030220, end: 20030224
  5. ZIAGEN [Suspect]
     Indication: HIV INFECTION
     Route: 048
     Dates: start: 20030220, end: 20030224
  6. TRIZIVIR [Concomitant]
     Indication: HIV INFECTION
     Dates: start: 20030110, end: 20030218

REACTIONS (1)
  - RENAL FAILURE ACUTE [None]
